FAERS Safety Report 11577630 (Version 4)
Quarter: 2016Q2

REPORT INFORMATION
  Report Type: Spontaneous
  Country: GB (occurrence: GB)
  Receive Date: 20150930
  Receipt Date: 20160415
  Transmission Date: 20160815
  Serious: Yes (Life-Threatening, Hospitalization)
  Sender: FDA-Public Use
  Company Number: GB-JNJFOC-20150926680

PATIENT
  Age: 46 Year
  Sex: Female

DRUGS (4)
  1. OCTASA [Concomitant]
     Indication: COLITIS ULCERATIVE
     Route: 065
  2. PREDNISOLONE. [Concomitant]
     Active Substance: PREDNISOLONE
     Indication: COLITIS ULCERATIVE
     Dosage: REDUCING DOSE
     Route: 065
  3. SIMPONI [Suspect]
     Active Substance: GOLIMUMAB
     Indication: COLITIS ULCERATIVE
     Route: 058
  4. OCTASA [Concomitant]
     Indication: COLITIS ULCERATIVE
     Route: 065

REACTIONS (3)
  - Colitis ulcerative [Unknown]
  - Myocarditis [Recovered/Resolved]
  - Atrial fibrillation [Unknown]

NARRATIVE: CASE EVENT DATE: 20150928
